FAERS Safety Report 10982492 (Version 1)
Quarter: 2015Q2

REPORT INFORMATION
  Report Type: Spontaneous
  Country: None (occurrence: None)
  Receive Date: 20150402
  Receipt Date: 20150402
  Transmission Date: 20150821
  Serious: Yes (Death)
  Sender: FDA-Public Use
  Company Number: None

PATIENT
  Age: 74 Year
  Sex: Male
  Weight: 86 kg

DRUGS (1)
  1. APIXABAN [Suspect]
     Active Substance: APIXABAN
     Dosage: 1 TABLET
     Route: 048
     Dates: start: 20140801, end: 20150401

REACTIONS (4)
  - Dyspnoea [None]
  - Bradycardia [None]
  - Cardiac arrest [None]
  - Subarachnoid haemorrhage [None]

NARRATIVE: CASE EVENT DATE: 20150401
